FAERS Safety Report 4563477-7 (Version None)
Quarter: 2005Q1

REPORT INFORMATION
  Report Type: 
  Country: None (occurrence: None)
  Receive Date: 20050128
  Receipt Date: 20040617
  Transmission Date: 20050727
  Serious: Yes (Other)
  Sender: FDA-Public Use
  Company Number: US-GLAXOSMITHKLINE-A0515131A

PATIENT
  Age: 29 Year
  Sex: Female

DRUGS (1)
  1. WELLBUTRIN [Suspect]
     Route: 048
     Dates: start: 20030101

REACTIONS (3)
  - ORAL MUCOSAL BLISTERING [None]
  - RASH GENERALISED [None]
  - STEVENS-JOHNSON SYNDROME [None]
